FAERS Safety Report 4783986-5 (Version None)
Quarter: 2005Q3

REPORT INFORMATION
  Report Type: 
  Country: None (occurrence: None)
  Receive Date: 20050927
  Receipt Date: 20050809
  Transmission Date: 20060218
  Serious: No
  Sender: FDA-Public Use
  Company Number: USA0508104916

PATIENT
  Age: 20 Year
  Sex: Male
  Weight: 82 kg

DRUGS (1)
  1. STRATTERA [Suspect]
     Dosage: 130 MG

REACTIONS (6)
  - COMMUNICATION DISORDER [None]
  - DYSARTHRIA [None]
  - PRESCRIBED OVERDOSE [None]
  - PRESSURE OF SPEECH [None]
  - REPETITIVE SPEECH [None]
  - SPEECH DISORDER [None]
